FAERS Safety Report 7389616-0 (Version None)
Quarter: 2011Q1

REPORT INFORMATION
  Report Type: 
  Country: None (occurrence: None)
  Receive Date: 20110323
  Receipt Date: 20110308
  Transmission Date: 20110831
  Serious: Yes (Hospitalization, Other)
  Sender: FDA-Public Use
  Company Number: AUR-APL-2011-00883

PATIENT
  Age: 63 Year
  Sex: Male
  Weight: 104.31 kg

DRUGS (9)
  1. METHOTREXATE SODIUM [Suspect]
     Indication: RHEUMATOID ARTHRITIS
     Dosage: 20MG-WEEKLY-ORAL
     Route: 048
     Dates: start: 20090915, end: 20110302
  2. MULTI-VITAMINS [Concomitant]
  3. AZITHROMYCIN [Concomitant]
  4. FOLIC ACID [Concomitant]
  5. METOPROLOL [Concomitant]
  6. SIMVASTATIN [Suspect]
     Indication: HYPERCHOLESTEROLAEMIA
     Dosage: 20MG-DAILY-ORAL
     Route: 048
     Dates: start: 20080715, end: 20110302
  7. CP-590,550 [Suspect]
     Indication: RHEUMATOID ARTHRITIS
     Dosage: 10MG-BID-ORAL
     Route: 048
  8. ASPIRIN [Concomitant]
  9. ZOLPIDEM [Concomitant]

REACTIONS (10)
  - METASTASES TO LIVER [None]
  - ALANINE AMINOTRANSFERASE INCREASED [None]
  - ABDOMINAL PAIN [None]
  - PYREXIA [None]
  - THROAT TIGHTNESS [None]
  - NEPHROLITHIASIS [None]
  - LIVER FUNCTION TEST NORMAL [None]
  - COLD SWEAT [None]
  - RENAL CYST [None]
  - SMALL CELL LUNG CANCER METASTATIC [None]
